FAERS Safety Report 4434031-2 (Version None)
Quarter: 2004Q3

REPORT INFORMATION
  Report Type: 
  Country: None (occurrence: None)
  Receive Date: 20040825
  Receipt Date: 20040811
  Transmission Date: 20050211
  Serious: Yes (Life-Threatening, Other)
  Sender: FDA-Public Use
  Company Number: A-US2004-06942

PATIENT
  Age: 42 Year
  Sex: Female

DRUGS (5)
  1. TRACLEER [Suspect]
     Indication: PULMONARY HYPERTENSION
     Dosage: 62.5 MG, BID, ORAL
     Route: 048
     Dates: start: 20040601, end: 20040714
  2. PRINIVIL [Concomitant]
  3. LEVOXYL [Concomitant]
  4. ACETYLSALICYLIC ACID SRT [Concomitant]
  5. LASIX [Concomitant]

REACTIONS (2)
  - HEPATIC STEATOSIS [None]
  - URTICARIA [None]
